FAERS Safety Report 20844793 (Version 2)
Quarter: 2022Q2

REPORT INFORMATION
  Report Type: Spontaneous
  Country: CZ (occurrence: None)
  Receive Date: 20220518
  Receipt Date: 20220602
  Transmission Date: 20220721
  Serious: Yes (Death, Hospitalization, Other)
  Sender: FDA-Public Use
  Company Number: 2022A181773

PATIENT
  Age: 25200 Day
  Sex: Female
  Weight: 67 kg

DRUGS (1)
  1. LYNPARZA [Suspect]
     Active Substance: OLAPARIB
     Indication: Ovarian cancer recurrent
     Route: 048
     Dates: start: 20220224

REACTIONS (11)
  - Lymphoma [Fatal]
  - Multiple organ dysfunction syndrome [Fatal]
  - Sepsis [Fatal]
  - Cardiovascular disorder [Fatal]
  - Immune-mediated hepatic disorder [Not Recovered/Not Resolved]
  - Drug-induced liver injury [Unknown]
  - Hepatic encephalopathy [Unknown]
  - Hepatic lesion [Unknown]
  - Coagulopathy [Unknown]
  - Neutropenia [Unknown]
  - Thrombocytopenia [Unknown]

NARRATIVE: CASE EVENT DATE: 20220502
